FAERS Safety Report 15571432 (Version 1)
Quarter: 2018Q4

REPORT INFORMATION
  Report Type: Report from Study
  Country: None (occurrence: RO)
  Receive Date: 20181031
  Receipt Date: 20181031
  Transmission Date: 20190205
  Serious: Yes (Hospitalization)
  Sender: FDA-Public Use
  Company Number: RO-ABBVIE-18K-135-2534477-00

PATIENT
  Age: 39 Year
  Sex: Female

DRUGS (1)
  1. HUMIRA [Suspect]
     Active Substance: ADALIMUMAB
     Indication: CROHN^S DISEASE
     Route: 058
     Dates: start: 20110515

REACTIONS (5)
  - Meningioma benign [Not Recovered/Not Resolved]
  - Nausea [Unknown]
  - Panic attack [Recovered/Resolved]
  - Head discomfort [Recovered/Resolved]
  - Large intestine erosion [Not Recovered/Not Resolved]

NARRATIVE: CASE EVENT DATE: 201802
